FAERS Safety Report 19498884 (Version 1)
Quarter: 2021Q3

REPORT INFORMATION
  Report Type: Spontaneous
  Country: US (occurrence: US)
  Receive Date: 20210706
  Receipt Date: 20210706
  Transmission Date: 20211014
  Serious: No
  Sender: FDA-Public Use
  Company Number: US-PFIZER INC-2021380804

PATIENT
  Age: 24 Year
  Sex: Male

DRUGS (9)
  1. PEMETREXED. [Suspect]
     Active Substance: PEMETREXED
     Indication: NON-SMALL CELL LUNG CANCER
     Dosage: UNK
     Dates: start: 201212, end: 201303
  2. CRIZOTINIB [Suspect]
     Active Substance: CRIZOTINIB
     Dosage: UNK
     Dates: start: 201408, end: 201504
  3. CERITINIB [Suspect]
     Active Substance: CERITINIB
     Indication: NON-SMALL CELL LUNG CANCER
     Dosage: UNK
     Dates: start: 20120530, end: 20121118
  4. PEMETREXED. [Suspect]
     Active Substance: PEMETREXED
     Dosage: UNK
     Dates: start: 201406, end: 201504
  5. BEVACIZUMAB. [Suspect]
     Active Substance: BEVACIZUMAB
     Dosage: UNK
     Dates: start: 201212, end: 201303
  6. CISPLATIN. [Suspect]
     Active Substance: CISPLATIN
     Indication: NON-SMALL CELL LUNG CANCER
     Dosage: UNK
     Dates: start: 201212, end: 201303
  7. CRIZOTINIB [Suspect]
     Active Substance: CRIZOTINIB
     Indication: NON-SMALL CELL LUNG CANCER
     Dosage: UNK
     Dates: start: 20110911, end: 20120511
  8. PEMETREXED. [Suspect]
     Active Substance: PEMETREXED
     Dosage: UNK
     Dates: start: 201303, end: 201404
  9. BEVACIZUMAB. [Suspect]
     Active Substance: BEVACIZUMAB
     Dosage: UNK
     Dates: start: 201303, end: 201404

REACTIONS (1)
  - Neoplasm progression [Unknown]
